FAERS Safety Report 23895989 (Version 1)
Quarter: 2024Q2

REPORT INFORMATION
  Report Type: Spontaneous
  Country: US (occurrence: None)
  Receive Date: 20240523
  Receipt Date: 20240523
  Transmission Date: 20240715
  Serious: Yes (Hospitalization)
  Sender: FDA-Public Use
  Company Number: None

PATIENT
  Age: 47 Year
  Sex: Female

DRUGS (1)
  1. OCTREOTIDE [Suspect]
     Active Substance: OCTREOTIDE\OCTREOTIDE ACETATE
     Indication: Gastrointestinal stromal tumour
     Dosage: FREQUENCY : EVERY 8 HOURS;?
     Route: 058
     Dates: start: 202404

REACTIONS (2)
  - Abdominal operation [None]
  - Therapy interrupted [None]

NARRATIVE: CASE EVENT DATE: 20240501
